FAERS Safety Report 11089301 (Version 2)
Quarter: 2015Q3

REPORT INFORMATION
  Report Type: Report from Study
  Country: US (occurrence: US)
  Receive Date: 20150505
  Receipt Date: 20150707
  Transmission Date: 20151125
  Serious: Yes (Hospitalization)
  Sender: FDA-Public Use
  Company Number: US-GILEAD-2015-0151837

PATIENT
  Age: 59 Year
  Sex: Female

DRUGS (8)
  1. PROPAFENONE. [Concomitant]
     Active Substance: PROPAFENONE
  2. LYRICA [Concomitant]
     Active Substance: PREGABALIN
  3. CYMBALTA [Concomitant]
     Active Substance: DULOXETINE HYDROCHLORIDE
  4. AMBRISENTAN [Suspect]
     Active Substance: AMBRISENTAN
     Indication: COR PULMONALE CHRONIC
     Dosage: 10 MG, QD
     Route: 065
     Dates: start: 20140521
  5. ADEMPAS [Concomitant]
     Active Substance: RIOCIGUAT
  6. DIOVAN [Concomitant]
     Active Substance: VALSARTAN
  7. PROMETHAZINE [Concomitant]
     Active Substance: PROMETHAZINE\PROMETHAZINE HYDROCHLORIDE
  8. GABAPENTIN. [Concomitant]
     Active Substance: GABAPENTIN

REACTIONS (2)
  - Asthenia [Unknown]
  - Fall [Recovered/Resolved]

NARRATIVE: CASE EVENT DATE: 20150418
